FAERS Safety Report 6290646-0 (Version None)
Quarter: 2009Q3

REPORT INFORMATION
  Report Type: 
  Country: None (occurrence: None)
  Receive Date: 20090730
  Receipt Date: 20090720
  Transmission Date: 20100115
  Serious: Yes (Other)
  Sender: FDA-Public Use
  Company Number: PHEH2007US15447

PATIENT
  Sex: Male

DRUGS (11)
  1. AREDIA [Suspect]
  2. ZOMETA [Suspect]
     Indication: BONE EROSION
     Dosage: 4 MG, QMO
     Route: 042
  3. ZOMETA [Suspect]
     Indication: PATHOLOGICAL FRACTURE
  4. CELEBREX [Concomitant]
  5. OXYCODONE [Concomitant]
  6. NEXIUM [Concomitant]
  7. ACETAMINOPHEN AND HYDROCODONE BITARTRATE [Concomitant]
  8. MULTIVITAMIN ^LAPPE^ [Concomitant]
  9. COLOSTRUM [Concomitant]
  10. SAW PALMETTO [Concomitant]
  11. SOY ISOFLAVONES [Concomitant]

REACTIONS (12)
  - ANXIETY [None]
  - APLASTIC ANAEMIA [None]
  - BONE NEOPLASM [None]
  - INJURY [None]
  - ORAL HERPES [None]
  - OSTEONECROSIS [None]
  - PAIN [None]
  - POOR DENTAL CONDITION [None]
  - SKIN CANDIDA [None]
  - SPINAL FRACTURE [None]
  - TOOTH FRACTURE [None]
  - WEIGHT DECREASED [None]
